FAERS Safety Report 16868989 (Version 1)
Quarter: 2019Q3

REPORT INFORMATION
  Report Type: Spontaneous
  Country: US (occurrence: US)
  Receive Date: 20190930
  Receipt Date: 20190930
  Transmission Date: 20191005
  Serious: No
  Sender: FDA-Public Use
  Company Number: US-ELI_LILLY_AND_COMPANY-US201909014021

PATIENT
  Age: 75 Year
  Sex: Female

DRUGS (1)
  1. EMGALITY [Suspect]
     Active Substance: GALCANEZUMAB-GNLM
     Indication: PRODUCT USED FOR UNKNOWN INDICATION
     Dosage: UNK
     Route: 065
     Dates: end: 201907

REACTIONS (5)
  - Abdominal distension [Not Recovered/Not Resolved]
  - Urticaria [Unknown]
  - Gastrooesophageal reflux disease [Unknown]
  - Weight increased [Recovered/Resolved]
  - Pruritus generalised [Recovering/Resolving]
